FAERS Safety Report 7345432-7 (Version None)
Quarter: 2011Q1

REPORT INFORMATION
  Report Type: 
  Country: None (occurrence: None)
  Receive Date: 20110310
  Receipt Date: 20110301
  Transmission Date: 20110831
  Serious: Yes (Other)
  Sender: FDA-Public Use
  Company Number: US-SANOFI-AVENTIS-2011SA013032

PATIENT
  Sex: Female
  Weight: 76 kg

DRUGS (7)
  1. PLAVIX [Suspect]
     Route: 065
  2. SIMVASTATIN [Concomitant]
  3. ASPIRIN [Concomitant]
  4. LISINOPRIL [Concomitant]
  5. DIAZEPAM [Concomitant]
  6. VERAPAMIL [Concomitant]
  7. K-DUR [Concomitant]

REACTIONS (4)
  - SPEECH DISORDER [None]
  - HEADACHE [None]
  - FALL [None]
  - CEREBROVASCULAR ACCIDENT [None]
